FAERS Safety Report 4826808-6 (Version None)
Quarter: 2005Q4

REPORT INFORMATION
  Report Type: 
  Country: None (occurrence: None)
  Receive Date: 20051014
  Receipt Date: 20050622
  Transmission Date: 20060501
  Serious: No
  Sender: FDA-Public Use
  Company Number: 2005SP001551

PATIENT
  Age: 69 Year
  Sex: Female

DRUGS (4)
  1. LUNESTA [Suspect]
     Dosage: 2 MG;HS;ORAL
     Route: 048
     Dates: start: 20050617, end: 20050621
  2. METPROLOL [Concomitant]
  3. ATORVASTATIN CALCIUM [Concomitant]
  4. SYNTHROID [Concomitant]

REACTIONS (1)
  - RESTLESSNESS [None]
